FAERS Safety Report 15782900 (Version 1)
Quarter: 2019Q1

REPORT INFORMATION
  Report Type: Spontaneous
  Country: US (occurrence: US)
  Receive Date: 20190102
  Receipt Date: 20190102
  Transmission Date: 20190417
  Serious: No
  Sender: FDA-Public Use
  Company Number: US-PERRIGO-18US006147

PATIENT
  Age: 61 Year
  Sex: Female
  Weight: 103.86 kg

DRUGS (10)
  1. ANALGESICS [Concomitant]
     Active Substance: UNSPECIFIED INGREDIENT
     Indication: ARTHRITIS
     Dosage: UNK
     Route: 065
  2. LIPID MODIFYING AGENTS [Concomitant]
     Active Substance: UNSPECIFIED INGREDIENT
     Indication: BLOOD CHOLESTEROL INCREASED
     Dosage: UNK
     Route: 065
  3. ANXIOLYTICS [Concomitant]
     Active Substance: UNSPECIFIED INGREDIENT
     Indication: ANXIETY
     Route: 065
  4. H2-RECEPTOR ANTAGONISTS [Concomitant]
     Active Substance: UNSPECIFIED INGREDIENT
     Indication: GASTROOESOPHAGEAL REFLUX DISEASE
     Dosage: UNK
     Route: 065
  5. ANTIDIARRHEALS, INTESTINAL ANTIINFLAMMATORY/A [Concomitant]
     Active Substance: UNSPECIFIED INGREDIENT
     Indication: DIARRHOEA
     Dosage: UNK
     Route: 065
  6. TIOCONAZOLE. [Suspect]
     Active Substance: TIOCONAZOLE
     Indication: VULVOVAGINAL MYCOTIC INFECTION
     Dosage: 300 MG, SINGLE
     Route: 067
     Dates: start: 20180607, end: 20180607
  7. ANTIHYPERTENSIVES [Concomitant]
     Active Substance: UNSPECIFIED INGREDIENT
     Indication: HYPERTENSION
     Dosage: UNK
     Route: 065
  8. ANTIDEPRESSANTS [Concomitant]
     Active Substance: UNSPECIFIED INGREDIENT
     Indication: DEPRESSION
     Route: 065
  9. DRUGS USED IN DIABETES [Concomitant]
     Active Substance: UNSPECIFIED INGREDIENT
     Indication: DIABETES MELLITUS
     Dosage: UNK
     Route: 065
  10. ANTIMIGRAINE PREPARATIONS [Concomitant]
     Active Substance: UNSPECIFIED INGREDIENT
     Indication: MIGRAINE
     Dosage: UNK
     Route: 065

REACTIONS (1)
  - Vulvovaginal burning sensation [Recovered/Resolved]

NARRATIVE: CASE EVENT DATE: 20180607
